FAERS Safety Report 8496655 (Version 3)
Quarter: 2013Q1

REPORT INFORMATION
  Report Type: Report from Study
  Country: AT (occurrence: AT)
  Receive Date: 20120405
  Receipt Date: 20130213
  Transmission Date: 20140127
  Serious: Yes (Hospitalization)
  Sender: FDA-Public Use
  Company Number: AT-ROCHE-1018165

PATIENT
  Sex: Female
  Weight: 69 kg

DRUGS (7)
  1. RITUXIMAB [Suspect]
     Indication: CHRONIC LYMPHOCYTIC LEUKAEMIA
     Dosage: DATE OF LAST DOSE PRIOR TO SAE 16 NOVEMBER 2011, PERMANENTLY DISCONTINUED
     Route: 042
     Dates: start: 20110531, end: 20120116
  2. EUTHYROX [Concomitant]
     Route: 065
     Dates: start: 2010
  3. VALTREX [Concomitant]
     Route: 065
     Dates: start: 20100902
  4. PLAVIX [Concomitant]
     Dosage: BEFORE STUDY ENTRY
     Route: 065
  5. SORTIS [Concomitant]
     Dosage: BEFORE STUDY ENTRY
     Route: 065
  6. TRITTICO [Concomitant]
     Route: 065
     Dates: start: 20120502
  7. CITALOPRAM [Concomitant]
     Route: 065
     Dates: start: 20120502

REACTIONS (4)
  - Optic neuritis [Recovered/Resolved]
  - Amaurosis [Recovered/Resolved with Sequelae]
  - Optic atrophy [Recovered/Resolved with Sequelae]
  - Amaurosis [Recovered/Resolved with Sequelae]
